FAERS Safety Report 5605973-7 (Version None)
Quarter: 2008Q1

REPORT INFORMATION
  Report Type: 
  Country: None (occurrence: None)
  Receive Date: 20080123
  Receipt Date: 20080123
  Transmission Date: 20080703
  Serious: Yes (Other)
  Sender: FDA-Public Use
  Company Number: None

PATIENT
  Sex: Female

DRUGS (1)
  1. PAROXETINE HCL [Suspect]
     Indication: ANXIETY
     Dosage: 20MG  1/2 TAB IN AM
     Dates: start: 20070924, end: 20071009

REACTIONS (3)
  - ABNORMAL DREAMS [None]
  - MUSCLE TWITCHING [None]
  - TREMOR [None]
